FAERS Safety Report 24770654 (Version 1)
Quarter: 2024Q4

REPORT INFORMATION
  Report Type: Spontaneous
  Country: US (occurrence: None)
  Receive Date: 20241223
  Receipt Date: 20241223
  Transmission Date: 20250115
  Serious: Yes (Life-Threatening)
  Sender: Public
  Company Number: None

PATIENT
  Age: 35 Year
  Sex: Male
  Weight: 99.9 kg

DRUGS (1)
  1. ALVESCO [Suspect]
     Active Substance: CICLESONIDE
     Dosage: ;?OTHER QUANTITY : 2 PUFF(S)?FREQUENCY : DAILY?
     Route: 048

REACTIONS (4)
  - Asthenia [None]
  - Dizziness [None]
  - Dizziness [None]
  - Tinnitus [None]

NARRATIVE: CASE EVENT DATE: 20241223
